FAERS Safety Report 23791177 (Version 5)
Quarter: 2024Q2

REPORT INFORMATION
  Report Type: Spontaneous
  Country: US (occurrence: US)
  Receive Date: 20240428
  Receipt Date: 20240607
  Transmission Date: 20240716
  Serious: No
  Sender: FDA-Public Use
  Company Number: US-TORRENT-00013541

PATIENT

DRUGS (1)
  1. ZOLPIDEM TARTRATE [Suspect]
     Active Substance: ZOLPIDEM TARTRATE
     Indication: Insomnia
     Dosage: NIGHT 1: UNKNOWN DOSE?NIGHT 2: 2 TABLET 10 MG?NIGHT :3 1 TABLET 10 MG
     Route: 065

REACTIONS (9)
  - Drug ineffective [Unknown]
  - Malaise [Unknown]
  - Headache [Unknown]
  - Epigastric discomfort [Unknown]
  - Vomiting [Unknown]
  - Abdominal pain upper [Unknown]
  - Nausea [Unknown]
  - Abdominal discomfort [Unknown]
  - Product use issue [Unknown]
